FAERS Safety Report 9242635 (Version 1)
Quarter: 2013Q2

REPORT INFORMATION
  Report Type: Spontaneous
  Country: JP (occurrence: JP)
  Receive Date: 20130419
  Receipt Date: 20130419
  Transmission Date: 20140414
  Serious: Yes (Other)
  Sender: FDA-Public Use
  Company Number: JP-GLAXOSMITHKLINE-B0867330A

PATIENT
  Age: 32 Year
  Sex: Female

DRUGS (6)
  1. LAMICTAL [Suspect]
     Indication: EPILEPSY
     Dosage: 25MG TWICE PER DAY
     Route: 048
     Dates: start: 20121226, end: 20130207
  2. ANTICONVULSANTS [Concomitant]
  3. SULFONAMIDE [Concomitant]
  4. PENICILLINS [Concomitant]
  5. BARBITURATES [Concomitant]
  6. NSAIDS [Concomitant]

REACTIONS (9)
  - Stevens-Johnson syndrome [Recovered/Resolved]
  - Rash generalised [Unknown]
  - Oral disorder [Unknown]
  - Oral mucosa erosion [Unknown]
  - Lip erosion [Unknown]
  - Scab [Unknown]
  - Pyrexia [Unknown]
  - Drug eruption [Unknown]
  - Influenza [Unknown]
